FAERS Safety Report 7725904-3 (Version None)
Quarter: 2011Q3

REPORT INFORMATION
  Report Type: 
  Country: None (occurrence: None)
  Receive Date: 20110902
  Receipt Date: 20110831
  Transmission Date: 20111222
  Serious: Yes (Other)
  Sender: FDA-Public Use
  Company Number: US-SHIONOGI, INC-2011000155

PATIENT
  Age: 11 Year
  Sex: Male

DRUGS (8)
  1. CONCERTA [Concomitant]
     Dosage: 36 MG, UNK
  2. ADVAIR DISKUS 100/50 [Concomitant]
     Dosage: UNK
  3. KEPPRA [Concomitant]
     Dosage: 750 MG, BID
  4. PREVACID [Concomitant]
     Dosage: 30 MG, BID
  5. CLONIDINE HYDROCHLORIDE [Concomitant]
     Dosage: UNK
  6. KAPVAY [Suspect]
     Dosage: 0.3MG QD (0.1 MG Q AM; 0.2 MG Q PM)
  7. TRAZODONE HYDROCHLORIDE [Concomitant]
     Dosage: 50 MG, EVERY NIGHT
  8. SINGULAIR [Concomitant]
     Dosage: UNK

REACTIONS (1)
  - HALLUCINATION [None]
